FAERS Safety Report 16747963 (Version 4)
Quarter: 2019Q4

REPORT INFORMATION
  Report Type: Report from Study
  Country: FR (occurrence: FR)
  Receive Date: 20190827
  Receipt Date: 20191106
  Transmission Date: 20200122
  Serious: Yes (Hospitalization, Other)
  Sender: FDA-Public Use
  Company Number: FR-EXELIXIS-XL18418017187

PATIENT
  Age: 71 Year
  Sex: Male
  Weight: 66 kg

DRUGS (2)
  1. ATEZOLIZUMAB. [Suspect]
     Active Substance: ATEZOLIZUMAB
     Indication: TRANSITIONAL CELL CARCINOMA
     Dosage: 1200 MG, Q3WEEKS
     Route: 042
     Dates: start: 20181108
  2. XL184 [Suspect]
     Active Substance: CABOZANTINIB
     Indication: TRANSITIONAL CELL CARCINOMA
     Dosage: 40 MG, QD
     Route: 048
     Dates: start: 20181108

REACTIONS (2)
  - Thrombocytopenia [Recovered/Resolved]
  - Cytokine release syndrome [Recovered/Resolved]

NARRATIVE: CASE EVENT DATE: 20181119
